FAERS Safety Report 5218408-3 (Version None)
Quarter: 2007Q1

REPORT INFORMATION
  Report Type: 
  Country: None (occurrence: None)
  Receive Date: 20070124
  Receipt Date: 20070117
  Transmission Date: 20070707
  Serious: Yes (Other)
  Sender: FDA-Public Use
  Company Number: JP-PFIZER INC-2007004866

PATIENT
  Age: 34 Year
  Sex: Female

DRUGS (1)
  1. ZOLOFT [Suspect]
     Dosage: DAILY DOSE:125MG
     Route: 048

REACTIONS (4)
  - BLOOD CREATINE PHOSPHOKINASE INCREASED [None]
  - CENTRAL NERVOUS SYSTEM STIMULATION [None]
  - MYOGLOBINURIA [None]
  - NEUROLEPTIC MALIGNANT SYNDROME [None]
